FAERS Safety Report 23034500 (Version 3)
Quarter: 2025Q4

REPORT INFORMATION
  Report Type: Report from Study
  Country: US (occurrence: US)
  Receive Date: 20231005
  Receipt Date: 20251111
  Transmission Date: 20260118
  Serious: Yes (Other)
  Sender: BAYER HEALTHCARE PHARMACEUTICALS INC.
  Company Number: US-BAYER-2023A137543

PATIENT
  Age: 78 Year
  Sex: Male

DRUGS (2)
  1. NUBEQA [Suspect]
     Active Substance: DAROLUTAMIDE
     Indication: Prostate cancer
     Dosage: 600 MG, BID
     Route: 048
  2. NUBEQA [Suspect]
     Active Substance: DAROLUTAMIDE
     Indication: Prostate cancer
     Dosage: 600 MG, BID
     Route: 048

REACTIONS (9)
  - Erectile dysfunction [Not Recovered/Not Resolved]
  - Diarrhoea [Not Recovered/Not Resolved]
  - Anaemia [Recovered/Resolved]
  - Gastritis [Recovered/Resolved]
  - Gastric polyps [Recovered/Resolved]
  - Weight increased [Recovered/Resolved]
  - Hot flush [Recovered/Resolved]
  - Fatigue [Recovered/Resolved]
  - Product dose omission issue [None]
